FAERS Safety Report 12563627 (Version 4)
Quarter: 2018Q1

REPORT INFORMATION
  Report Type: Report from Study
  Country: BR (occurrence: BR)
  Receive Date: 20160715
  Receipt Date: 20180316
  Transmission Date: 20180508
  Serious: Yes (Hospitalization, Other)
  Sender: FDA-Public Use
  Company Number: PHHY2016BR096243

PATIENT
  Sex: Female
  Weight: 66 kg

DRUGS (10)
  1. RIVOTRIL [Suspect]
     Active Substance: CLONAZEPAM
     Indication: NERVOUSNESS
  2. RIVOTRIL [Suspect]
     Active Substance: CLONAZEPAM
     Indication: BLOOD PRESSURE INADEQUATELY CONTROLLED
  3. CALCIUM [Concomitant]
     Active Substance: CALCIUM
     Indication: PRODUCT USED FOR UNKNOWN INDICATION
     Route: 065
  4. SIMVASTATIN. [Suspect]
     Active Substance: SIMVASTATIN
     Indication: PRODUCT USED FOR UNKNOWN INDICATION
     Route: 065
  5. AMLODIPINE [Concomitant]
     Active Substance: AMLODIPINE BESYLATE
     Indication: HYPERTENSION
     Dosage: 2 DF, QD
     Route: 048
  6. DIOVAN [Suspect]
     Active Substance: VALSARTAN
     Dosage: 1 DF, QD
     Route: 065
  7. DIOVAN HCT [Suspect]
     Active Substance: HYDROCHLOROTHIAZIDE\VALSARTAN
     Indication: HYPERTENSION
     Dosage: 1 DF (HYDROCHLOROTHIAZIDE 12.5 MG, VALSARTAN 320 MG), QD
     Route: 048
     Dates: start: 20170512
  8. RIVOTRIL [Suspect]
     Active Substance: CLONAZEPAM
     Indication: ANXIETY
     Dosage: 1 DF, BID 1 IN MORNING 1 AT NIGHT
     Route: 048
     Dates: start: 2017
  9. DIOVAN [Suspect]
     Active Substance: VALSARTAN
     Indication: HYPERTENSION
     Dosage: 2 DF (160 MG), QD STARTED 10 YEARS AGO
     Route: 048
     Dates: end: 201705
  10. VITAMIN D [Concomitant]
     Active Substance: CHOLECALCIFEROL
     Indication: PRODUCT USED FOR UNKNOWN INDICATION
     Route: 065

REACTIONS (22)
  - Depression [Unknown]
  - Spinal pain [Unknown]
  - Fear [Recovered/Resolved]
  - Pain [Unknown]
  - Stress [Recovered/Resolved]
  - Malaise [Recovering/Resolving]
  - Fall [Unknown]
  - Dizziness [Recovered/Resolved]
  - Spinal disorder [Unknown]
  - Arthralgia [Unknown]
  - Agitation [Recovering/Resolving]
  - Road traffic accident [Recovered/Resolved]
  - Nervousness [Recovered/Resolved]
  - Necrosis [Recovered/Resolved]
  - Blood pressure increased [Recovered/Resolved]
  - Intraductal papilloma of breast [Recovered/Resolved]
  - Ankle fracture [Recovered/Resolved]
  - Breast mass [Recovered/Resolved]
  - Hypercholesterolaemia [Recovered/Resolved]
  - Blood pressure inadequately controlled [Recovering/Resolving]
  - Weight decreased [Recovering/Resolving]
  - Joint swelling [Unknown]

NARRATIVE: CASE EVENT DATE: 2015
